FAERS Safety Report 18623977 (Version 1)
Quarter: 2020Q4

REPORT INFORMATION
  Report Type: Spontaneous
  Country: US (occurrence: US)
  Receive Date: 20201216
  Receipt Date: 20201216
  Transmission Date: 20210114
  Serious: No
  Sender: FDA-Public Use
  Company Number: US-NEXGEN PHARMA, INC.-2103056

PATIENT

DRUGS (1)
  1. BAC 300 ( BUTALBITAL 50MG, ACETAMINOPHEN 300MG AND CAFFEINE 40MG) [Suspect]
     Active Substance: ACETAMINOPHEN\BUTALBITAL\CAFFEINE
     Route: 048

REACTIONS (1)
  - Drug ineffective [Unknown]
